FAERS Safety Report 6203977-7 (Version None)
Quarter: 2009Q2

REPORT INFORMATION
  Report Type: 
  Country: None (occurrence: None)
  Receive Date: 20090527
  Receipt Date: 20090520
  Transmission Date: 20091009
  Serious: Yes (Other)
  Sender: FDA-Public Use
  Company Number: B0574940A

PATIENT
  Sex: Female

DRUGS (4)
  1. LAMICTAL [Suspect]
     Indication: EPILEPSY
     Dosage: 25MG TWICE PER DAY
     Route: 048
     Dates: start: 20090120, end: 20090209
  2. TEGRETOL [Concomitant]
     Route: 048
  3. URBANYL [Concomitant]
     Route: 048
  4. SPECIAFOLDINE [Concomitant]
     Route: 048

REACTIONS (2)
  - PSORIASIS [None]
  - SKIN LESION [None]
